FAERS Safety Report 20749079 (Version 1)
Quarter: 2022Q2

REPORT INFORMATION
  Report Type: Spontaneous
  Country: US (occurrence: None)
  Receive Date: 20220425
  Receipt Date: 20220425
  Transmission Date: 20220721
  Serious: No
  Sender: FDA-Public Use
  Company Number: None

PATIENT
  Age: 50 Year
  Sex: Female

DRUGS (1)
  1. HUMIRA [Suspect]
     Active Substance: ADALIMUMAB
     Indication: Ankylosing spondylitis
     Dosage: FREQUENCY : EVERY OTHER WEEK;?
     Route: 058
     Dates: start: 20220328

REACTIONS (8)
  - Erythema [None]
  - Pruritus [None]
  - Skin burning sensation [None]
  - Therapy non-responder [None]
  - Condition aggravated [None]
  - Insomnia [None]
  - Vomiting [None]
  - Hot flush [None]

NARRATIVE: CASE EVENT DATE: 20220328
